FAERS Safety Report 9832661 (Version 1)
Quarter: 2014Q1

REPORT INFORMATION
  Report Type: Report from Study
  Country: US (occurrence: US)
  Receive Date: 20140121
  Receipt Date: 20140121
  Transmission Date: 20141002
  Serious: Yes (Hospitalization, Other)
  Sender: FDA-Public Use
  Company Number: US-ALEXION PHARMACEUTICALS INC.-A201303758

PATIENT
  Age: 49 Year
  Sex: Female

DRUGS (1)
  1. SOLIRIS [Suspect]
     Indication: PAROXYSMAL NOCTURNAL HAEMOGLOBINURIA
     Route: 042

REACTIONS (8)
  - Pyrexia [Unknown]
  - Haemolysis [Unknown]
  - Periarthritis [Unknown]
  - Chills [Unknown]
  - Pain [Unknown]
  - Musculoskeletal pain [Unknown]
  - Pyrexia [Unknown]
  - Infusion related reaction [Unknown]
